FAERS Safety Report 9290102 (Version 1)
Quarter: 2013Q2

REPORT INFORMATION
  Report Type: Report from Study
  Country: US (occurrence: US)
  Receive Date: 20130515
  Receipt Date: 20130515
  Transmission Date: 20140414
  Serious: No
  Sender: FDA-Public Use
  Company Number: PHEH2013US010609

PATIENT
  Age: 81 Year
  Sex: Male

DRUGS (10)
  1. TASIGNA [Suspect]
     Indication: CHRONIC MYELOID LEUKAEMIA
     Dosage: 400 MG, BID
     Route: 048
     Dates: start: 20130101, end: 20130510
  2. OMEPRAZOLE [Interacting]
  3. CLONIDINE [Concomitant]
  4. LORATADINE [Concomitant]
  5. HYDROCHLOROTHIAZIDE [Concomitant]
  6. IMODIUM [Concomitant]
  7. IRON [Concomitant]
  8. CRESTOR [Concomitant]
  9. MULTIVITAMIN [Concomitant]
  10. LISINOPRIL [Concomitant]

REACTIONS (1)
  - Labelled drug-drug interaction medication error [Unknown]
